FAERS Safety Report 25848658 (Version 2)
Quarter: 2025Q4

REPORT INFORMATION
  Report Type: Report from Study
  Country: EU (occurrence: EU)
  Receive Date: 20250925
  Receipt Date: 20251203
  Transmission Date: 20260117
  Serious: Yes (Hospitalization, Other)
  Sender: TAKEDA
  Company Number: EU-TAKEDA-2025TUS084093

PATIENT
  Age: 71 Year
  Sex: Female

DRUGS (24)
  1. TEDUGLUTIDE [Suspect]
     Active Substance: TEDUGLUTIDE
     Indication: Short-bowel syndrome
     Dosage: 2.15 MILLIGRAM, QD
     Dates: start: 20210914, end: 202205
  2. TEDUGLUTIDE [Suspect]
     Active Substance: TEDUGLUTIDE
     Dosage: 2.15 MILLIGRAM, QD
     Dates: start: 20220608, end: 20250806
  3. TEDUGLUTIDE [Suspect]
     Active Substance: TEDUGLUTIDE
  4. TEDUGLUTIDE [Suspect]
     Active Substance: TEDUGLUTIDE
  5. HYDROXYCHLOROQUINE [Concomitant]
     Active Substance: HYDROXYCHLOROQUINE
     Indication: Rheumatoid arthritis
     Dosage: 200 MILLIGRAM
  6. PANTOPRAZOLE [Concomitant]
     Active Substance: PANTOPRAZOLE
     Indication: Prophylaxis
     Dosage: 40 MILLIGRAM, QD
     Dates: start: 20200915
  7. Calcid [Concomitant]
     Indication: Calcium deficiency
     Dosage: 1000 MILLIGRAM, QD
     Dates: start: 20200915
  8. Calcid [Concomitant]
     Indication: Prophylaxis
  9. LEUCOVORIN CALCIUM [Concomitant]
     Active Substance: LEUCOVORIN CALCIUM
     Indication: Calcium deficiency
     Dosage: 15 MILLIGRAM, QD
     Dates: start: 20200915
  10. LEUCOVORIN CALCIUM [Concomitant]
     Active Substance: LEUCOVORIN CALCIUM
     Indication: Prophylaxis
  11. ALLOPURINOL [Concomitant]
     Active Substance: ALLOPURINOL
     Indication: Blood uric acid decreased
     Dosage: 150 MILLIGRAM, QD
     Dates: start: 20200915
  12. CHOLECALCIFEROL [Concomitant]
     Active Substance: CHOLECALCIFEROL
     Indication: Vitamin D deficiency
     Dosage: 25000 INTERNATIONAL UNIT, 1/WEEK
     Dates: start: 20200915
  13. BISOPROLOL FUMARATE [Concomitant]
     Active Substance: BISOPROLOL FUMARATE
     Indication: Cardiac failure
     Dosage: 250 MILLIGRAM, QD
     Dates: start: 20200915
  14. Meritene [Concomitant]
     Indication: Nutritional supplement allergy
     Dosage: 200 MILLILITER, QD
     Dates: start: 20200915
  15. MONTMORILLONITE [Concomitant]
     Active Substance: MONTMORILLONITE
     Indication: Diarrhoea
     Dosage: 6.5 GRAM, QD
     Dates: start: 20200915
  16. ASPIRIN LYSINE [Concomitant]
     Active Substance: ASPIRIN LYSINE
     Indication: Antiplatelet therapy
     Dosage: 75 MILLIGRAM, QD
     Dates: start: 20210831
  17. OMEGA 3 [Concomitant]
     Active Substance: CAPSAICIN
     Indication: Prophylaxis
     Dosage: 1 GRAM, QD
     Dates: start: 20210831
  18. Dobetin [Concomitant]
     Indication: Vitamin B12 deficiency
     Dosage: 500 MILLIGRAM
  19. PREDNISONE [Concomitant]
     Active Substance: PREDNISONE
     Indication: Pain
     Dosage: 25 MILLIGRAM, QD
     Dates: start: 20220217
  20. FERROUS SULFATE [Concomitant]
     Active Substance: FERROUS SULFATE
     Indication: Iron deficiency
     Dosage: 105 MILLIGRAM, QD
     Dates: start: 20220406
  21. LYRICA [Concomitant]
     Active Substance: PREGABALIN
     Indication: Anxiety
     Dosage: 25 MILLIGRAM, BID
     Dates: start: 20221103
  22. NALOXONE HYDROCHLORIDE\OXYCODONE HYDROCHLORIDE [Concomitant]
     Active Substance: NALOXONE HYDROCHLORIDE\OXYCODONE HYDROCHLORIDE
     Indication: Pain
     Dosage: 7.5 MILLIGRAM, BID
     Dates: start: 20221103
  23. DARBEPOETIN ALFA [Concomitant]
     Active Substance: DARBEPOETIN ALFA
     Indication: Anaemia
     Dosage: 60 MICROGRAM, 1/WEEK
     Dates: start: 20221103
  24. CALCIJEX [Concomitant]
     Active Substance: CALCITRIOL
     Indication: Osteoporosis prophylaxis
     Dosage: 0.25 MICROGRAM, QD
     Dates: start: 20221103

REACTIONS (1)
  - Acute kidney injury [Recovered/Resolved]

NARRATIVE: CASE EVENT DATE: 20250404
